FAERS Safety Report 8609342 (Version 2)
Quarter: 2012Q4

REPORT INFORMATION
  Report Type: 
  Country: IT (occurrence: IT)
  Receive Date: 20120612
  Receipt Date: 20120928
  Transmission Date: 20130627
  Serious: Yes (Other)
  Sender: FDA-Public Use
  Company Number: IT-RANBAXY-2012R1-56852

PATIENT
  Age: 43 Year

DRUGS (1)
  1. TOPIRAMATE [Suspect]
     Indication: TEMPORAL LOBE EPILEPSY
     Dosage: 150 mg, bid
     Route: 065

REACTIONS (1)
  - Visual impairment [Not Recovered/Not Resolved]
